FAERS Safety Report 18856071 (Version 1)
Quarter: 2021Q1

REPORT INFORMATION
  Report Type: Spontaneous
  Country: FR (occurrence: FR)
  Receive Date: 20210206
  Receipt Date: 20210206
  Transmission Date: 20210420
  Serious: Yes (Other)
  Sender: FDA-Public Use
  Company Number: FR-IPSEN BIOPHARMACEUTICALS, INC.-2021-02725

PATIENT
  Age: 43 Year
  Sex: Male

DRUGS (3)
  1. BRILIQUE [Concomitant]
     Active Substance: TICAGRELOR
  2. ASPIRINE [Concomitant]
     Active Substance: ASPIRIN
  3. SOMATULINE AUTOGEL [Suspect]
     Active Substance: LANREOTIDE ACETATE
     Indication: SECRETORY ADENOMA OF PITUITARY
     Dosage: 120 MG /EXTENDED RELEASE?DAILY DOSE? NOT REPORTED.
     Route: 058
     Dates: start: 1997

REACTIONS (2)
  - Coronary artery stenosis [Recovered/Resolved]
  - Coronary artery disease [Recovered/Resolved]
